FAERS Safety Report 22187142 (Version 1)
Quarter: 2023Q2

REPORT INFORMATION
  Report Type: Spontaneous
  Country: US (occurrence: US)
  Receive Date: 20230407
  Receipt Date: 20230407
  Transmission Date: 20230722
  Serious: No
  Sender: FDA-Public Use
  Company Number: US-JNJFOC-20230375489

PATIENT
  Age: 65 Year
  Sex: Female

DRUGS (2)
  1. WOMENS ROGAINE [Suspect]
     Active Substance: MINOXIDIL
     Indication: Alopecia
     Dosage: DOSE: ONE DROPPER FULL
     Route: 061
     Dates: start: 20230325, end: 20230325
  2. WOMENS ROGAINE [Suspect]
     Active Substance: MINOXIDIL
     Dosage: DOSE: ONE DROPPER FULL
     Route: 061
     Dates: start: 20230326, end: 20230326

REACTIONS (3)
  - Application site paraesthesia [Recovered/Resolved]
  - Application site pruritus [Recovered/Resolved]
  - Application site pain [Recovered/Resolved]

NARRATIVE: CASE EVENT DATE: 20230326
